FAERS Safety Report 4634799-6 (Version None)
Quarter: 2005Q2

REPORT INFORMATION
  Report Type: 
  Country: None (occurrence: None)
  Receive Date: 20050412
  Receipt Date: 20050412
  Transmission Date: 20051028
  Serious: Yes (Disabling, Other)
  Sender: FDA-Public Use
  Company Number: None

PATIENT
  Age: 40 Year
  Sex: Male
  Weight: 99.7913 kg

DRUGS (5)
  1. ZOCOR [Suspect]
     Indication: BLOOD CHOLESTEROL INCREASED
     Dosage: 20MG   ONCE A DAY  ORAL;  40MG/80MG  ONCE A DAY
     Route: 048
     Dates: start: 20020101, end: 20030601
  2. ZOCOR [Suspect]
     Indication: BLOOD TRIGLYCERIDES INCREASED
     Dosage: 20MG   ONCE A DAY  ORAL;  40MG/80MG  ONCE A DAY
     Route: 048
     Dates: start: 20020101, end: 20030601
  3. PREVACID [Concomitant]
  4. LOPRESSOR [Concomitant]
  5. XANAX [Concomitant]

REACTIONS (5)
  - ASTHENIA [None]
  - DRUG INEFFECTIVE [None]
  - JOINT SURGERY [None]
  - RHABDOMYOLYSIS [None]
  - TENDONITIS [None]
